FAERS Safety Report 4538096-9 (Version None)
Quarter: 2004Q4

REPORT INFORMATION
  Report Type: 
  Country: None (occurrence: None)
  Receive Date: 20041221
  Receipt Date: 20041215
  Transmission Date: 20050328
  Serious: Yes (Death, Life-Threatening, Hospitalization)
  Sender: FDA-Public Use
  Company Number: 2004112650

PATIENT
  Age: 62 Year
  Sex: Male

DRUGS (6)
  1. IRINOTECAN HCL [Suspect]
     Indication: COLORECTAL CANCER METASTATIC
     Dosage: INTRAVENOUS
     Route: 042
     Dates: start: 20041103, end: 20041103
  2. CALCIUM FOLINATE (CALCIUM FOLINATE) [Suspect]
     Indication: COLORECTAL CANCER METASTATIC
     Dosage: INTRAVENOUS
     Route: 042
     Dates: start: 20041103, end: 20041103
  3. FLUOROURACIL [Suspect]
     Indication: COLORECTAL CANCER METASTATIC
     Dosage: 2400  MG/M2, INTRAVENOUS
     Route: 042
     Dates: start: 20041103, end: 20041103
  4. SERTRALINE HCL [Concomitant]
  5. IRBESARTAN [Concomitant]
  6. MORPHINE SULFATE [Concomitant]

REACTIONS (2)
  - GASTROINTESTINAL HAEMORRHAGE [None]
  - MULTI-ORGAN FAILURE [None]
